FAERS Safety Report 4470114-9 (Version None)
Quarter: 2004Q3

REPORT INFORMATION
  Report Type: 
  Country: None (occurrence: None)
  Receive Date: 20040910
  Receipt Date: 20040709
  Transmission Date: 20050211
  Serious: No
  Sender: FDA-Public Use
  Company Number: 2004223361US

PATIENT
  Sex: Female
  Weight: 74.8 kg

DRUGS (4)
  1. BEXTRA [Suspect]
     Indication: OSTEOARTHRITIS
     Dosage: 10 MG
     Dates: start: 20020101
  2. HYZAAR [Concomitant]
  3. LABETALOL HCL [Concomitant]
  4. NEXIUM [Concomitant]

REACTIONS (3)
  - BLOOD PRESSURE INCREASED [None]
  - GASTROINTESTINAL MOTILITY DISORDER [None]
  - JOINT SWELLING [None]
